FAERS Safety Report 25818376 (Version 1)
Quarter: 2025Q3

REPORT INFORMATION
  Report Type: Spontaneous
  Country: US (occurrence: US)
  Receive Date: 20250918
  Receipt Date: 20250918
  Transmission Date: 20251020
  Serious: Yes (Hospitalization, Other)
  Sender: AMGEN
  Company Number: US-AMGEN-USASP2025180164

PATIENT

DRUGS (1)
  1. RITUXIMAB [Suspect]
     Active Substance: RITUXIMAB
     Indication: Multiple sclerosis
     Route: 065

REACTIONS (6)
  - Multiple sclerosis relapse [Unknown]
  - Herpes zoster [Unknown]
  - Off label use [Unknown]
  - Respiratory tract infection [Unknown]
  - Sinusitis [Unknown]
  - Infection [Unknown]
